FAERS Safety Report 6305300-6 (Version None)
Quarter: 2009Q3

REPORT INFORMATION
  Report Type: 
  Country: None (occurrence: None)
  Receive Date: 20090810
  Receipt Date: 20090810
  Transmission Date: 20100115
  Serious: Yes (Disabling)
  Sender: FDA-Public Use
  Company Number: None

PATIENT
  Sex: Female
  Weight: 50.8029 kg

DRUGS (2)
  1. ZICAM COLD REMEDY [Suspect]
     Indication: NASOPHARYNGITIS
     Dosage: 4 SPRAY EVERY 4 HRS
     Dates: start: 20060101
  2. ZICAM COLD REMEDY [Suspect]
     Dates: end: 20080101

REACTIONS (2)
  - AGEUSIA [None]
  - ANOSMIA [None]
